FAERS Safety Report 9204537 (Version 1)
Quarter: 2013Q1

REPORT INFORMATION
  Report Type: Spontaneous
  Country: GB (occurrence: None)
  Receive Date: 20130329
  Receipt Date: 20130329
  Transmission Date: 20140127
  Serious: Yes (Other)
  Sender: FDA-Public Use
  Company Number: AUR-APL-2013-02524

PATIENT
  Age: 26 Year
  Sex: Female

DRUGS (3)
  1. QUETIAPINE [Suspect]
     Indication: BIPOLAR DISORDER
     Route: 048
     Dates: start: 200802, end: 200806
  2. DEPAKOTE (VALPROATE SEMISODIUM) [Concomitant]
  3. OLANZAPINE (OLANZAPINE) [Concomitant]

REACTIONS (9)
  - Pregnancy [None]
  - Maternal exposure during pregnancy [None]
  - Optic neuritis [None]
  - Papilloedema [None]
  - Intracranial pressure increased [None]
  - Photopsia [None]
  - Vitreous floaters [None]
  - Headache [None]
  - Oedema [None]
